FAERS Safety Report 7957060-0 (Version None)
Quarter: 2011Q4

REPORT INFORMATION
  Report Type: 
  Country: None (occurrence: None)
  Receive Date: 20111205
  Receipt Date: 20111128
  Transmission Date: 20120403
  Serious: Yes (Hospitalization)
  Sender: FDA-Public Use
  Company Number: US-ROCHE-1018416

PATIENT
  Sex: Male
  Weight: 72.64 kg

DRUGS (2)
  1. GEMZAR [Concomitant]
     Route: 042
  2. XELODA [Suspect]
     Indication: PANCREATIC CARCINOMA
     Dates: start: 20111105

REACTIONS (4)
  - FALL [None]
  - DIZZINESS [None]
  - NAUSEA [None]
  - DIARRHOEA [None]
